FAERS Safety Report 4627432-0 (Version None)
Quarter: 2005Q1

REPORT INFORMATION
  Report Type: 
  Country: None (occurrence: None)
  Receive Date: 20050331
  Receipt Date: 20050316
  Transmission Date: 20050727
  Serious: Yes (Death)
  Sender: FDA-Public Use
  Company Number: 2005P1000001

PATIENT
  Age: 63 Year
  Sex: Male

DRUGS (1)
  1. BUSULFAN [Suspect]
     Indication: ESSENTIAL THROMBOCYTHAEMIA
     Dosage: 6-8 MG DAILY; IV
     Route: 042
     Dates: start: 20000401, end: 20020401

REACTIONS (12)
  - BACK PAIN [None]
  - BENCE JONES PROTEIN URINE PRESENT [None]
  - BLOOD LACTATE DEHYDROGENASE INCREASED [None]
  - FATIGUE [None]
  - HYPERCALCAEMIA [None]
  - INTERVERTEBRAL DISC PROTRUSION [None]
  - LEUKAEMIA PLASMACYTIC [None]
  - OSTEOLYSIS [None]
  - OSTEOPOROSIS [None]
  - PNEUMONIA [None]
  - RENAL FAILURE ACUTE [None]
  - SPINAL DISORDER [None]
